FAERS Safety Report 21396900 (Version 1)
Quarter: 2022Q3

REPORT INFORMATION
  Report Type: Spontaneous
  Country: US (occurrence: US)
  Receive Date: 20220930
  Receipt Date: 20220930
  Transmission Date: 20221026
  Serious: Yes (Other)
  Sender: FDA-Public Use
  Company Number: US-GLAXOSMITHKLINE-US2022AMR137130

PATIENT

DRUGS (1)
  1. LAMICTAL [Suspect]
     Active Substance: LAMOTRIGINE
     Indication: Product used for unknown indication
     Dosage: UNK

REACTIONS (6)
  - Psoriatic arthropathy [Unknown]
  - Acne cystic [Unknown]
  - Psoriasis [Unknown]
  - Pain [Unknown]
  - Scar [Unknown]
  - Infection [Unknown]
